FAERS Safety Report 24045178 (Version 5)
Quarter: 2024Q4

REPORT INFORMATION
  Report Type: Report from Study
  Country: CA (occurrence: CA)
  Receive Date: 20240703
  Receipt Date: 20241104
  Transmission Date: 20250115
  Serious: Yes (Hospitalization, Other)
  Sender: JOHNSON AND JOHNSON
  Company Number: CA-JNJFOC-20240666346

PATIENT
  Age: 58 Year
  Sex: Female
  Weight: 77 kg

DRUGS (4)
  1. STELARA [Suspect]
     Active Substance: USTEKINUMAB
     Indication: Fibromyalgia
     Dosage: (LAST INJECTION ON 23-JUN-2024)
     Route: 058
     Dates: start: 20161104
  2. STELARA [Suspect]
     Active Substance: USTEKINUMAB
     Indication: Psoriasis
     Route: 058
  3. STELARA [Suspect]
     Active Substance: USTEKINUMAB
     Route: 058
  4. STELARA [Suspect]
     Active Substance: USTEKINUMAB
     Route: 058

REACTIONS (5)
  - Uterine infection [Not Recovered/Not Resolved]
  - Rhinitis [Not Recovered/Not Resolved]
  - Sialoadenitis [Recovering/Resolving]
  - Infection [Recovering/Resolving]
  - Inappropriate schedule of product administration [Unknown]

NARRATIVE: CASE EVENT DATE: 20240601
